FAERS Safety Report 8162217-2 (Version None)
Quarter: 2012Q1

REPORT INFORMATION
  Report Type: 
  Country: None (occurrence: None)
  Receive Date: 20120224
  Receipt Date: 20111130
  Transmission Date: 20120608
  Serious: No
  Sender: FDA-Public Use
  Company Number: US-BRISTOL-MYERS SQUIBB COMPANY-16118713

PATIENT
  Age: 81 Year
  Sex: Male

DRUGS (7)
  1. JANUVIA [Suspect]
     Route: 065
  2. LESCOL [Suspect]
     Route: 065
  3. INSULIN GLARGINE [Suspect]
     Dates: start: 20080101
  4. LANTUS [Suspect]
     Dosage: 50 UNITS NOS,LANTUS PARENTRAL INJJ SOLUTION.100IU/ML
     Route: 058
     Dates: start: 20080101
  5. AMARYL [Suspect]
     Dosage: DOSE INCREASE TO 4MG
     Route: 048
  6. TOPROL-XL [Suspect]
     Route: 065
  7. METFORMIN HCL [Suspect]
     Route: 065

REACTIONS (4)
  - ARTHRALGIA [None]
  - MUSCLE SPASMS [None]
  - MUSCULAR WEAKNESS [None]
  - MYALGIA [None]
